FAERS Safety Report 5183612-X (Version None)
Quarter: 2006Q4

REPORT INFORMATION
  Report Type: 
  Country: None (occurrence: None)
  Receive Date: 20061220
  Receipt Date: 20060804
  Transmission Date: 20070319
  Serious: Yes (Other)
  Sender: FDA-Public Use
  Company Number: US-ROCHE-458438

PATIENT
  Age: 19 Year
  Sex: Female
  Weight: 51.3 kg

DRUGS (1)
  1. ACCUTANE [Suspect]
     Indication: DRUG USE FOR UNKNOWN INDICATION
     Route: 048
     Dates: start: 20000323, end: 20000515

REACTIONS (12)
  - ANXIETY [None]
  - ARRHYTHMIA [None]
  - COLITIS [None]
  - COLITIS ULCERATIVE [None]
  - CROHN'S DISEASE [None]
  - DEPRESSION [None]
  - GASTROOESOPHAGEAL REFLUX DISEASE [None]
  - INFLAMMATORY BOWEL DISEASE [None]
  - MOOD SWINGS [None]
  - PRURITUS [None]
  - SLEEP APNOEA SYNDROME [None]
  - SUICIDAL IDEATION [None]
